FAERS Safety Report 5975081-4 (Version None)
Quarter: 2008Q4

REPORT INFORMATION
  Report Type: 
  Country: None (occurrence: None)
  Receive Date: 20081202
  Receipt Date: 20081120
  Transmission Date: 20090506
  Serious: Yes (Other)
  Sender: FDA-Public Use
  Company Number: US-WYE-H06932208

PATIENT
  Sex: Female
  Weight: 39.5 kg

DRUGS (1)
  1. PRISTIQ [Suspect]
     Indication: DEPRESSION
     Route: 048
     Dates: start: 20081101

REACTIONS (6)
  - ABNORMAL BEHAVIOUR [None]
  - ANOREXIA [None]
  - CONDITION AGGRAVATED [None]
  - DYSPNOEA [None]
  - GAIT DISTURBANCE [None]
  - WEIGHT DECREASED [None]
